FAERS Safety Report 9226014 (Version 1)
Quarter: 2013Q2

REPORT INFORMATION
  Report Type: Spontaneous
  Country: JP (occurrence: JP)
  Receive Date: 20130411
  Receipt Date: 20130411
  Transmission Date: 20140414
  Serious: Yes (Hospitalization, Other)
  Sender: FDA-Public Use
  Company Number: JP-ASTRAZENECA-2013SE21755

PATIENT
  Sex: Male

DRUGS (1)
  1. MEROPEN [Suspect]
     Indication: ENDOCARDITIS
     Route: 042

REACTIONS (1)
  - Staphylococcal infection [Unknown]
